FAERS Safety Report 6702238-7 (Version None)
Quarter: 2010Q2

REPORT INFORMATION
  Report Type: 
  Country: None (occurrence: None)
  Receive Date: 20100429
  Receipt Date: 20100421
  Transmission Date: 20101027
  Serious: Yes (Hospitalization)
  Sender: FDA-Public Use
  Company Number: JP-MERCK-1004USA03961

PATIENT
  Age: 79 Year
  Sex: Female

DRUGS (6)
  1. JANUVIA [Suspect]
     Route: 048
     Dates: start: 20100317
  2. AMARYL [Suspect]
     Route: 048
  3. DIBETOS [Concomitant]
     Route: 048
  4. AMLODIPINE [Concomitant]
     Route: 048
  5. CARVEDILOL [Concomitant]
     Route: 048
  6. LIPIDIL [Concomitant]
     Route: 048

REACTIONS (1)
  - HYPOGLYCAEMIA [None]
